FAERS Safety Report 4640563-4 (Version None)
Quarter: 2005Q2

REPORT INFORMATION
  Report Type: 
  Country: None (occurrence: None)
  Receive Date: 20050418
  Receipt Date: 20050407
  Transmission Date: 20051028
  Serious: Yes (Hospitalization, Congenital Anomaly)
  Sender: FDA-Public Use
  Company Number: 2004-03-2245

PATIENT
  Age: 1 Day
  Weight: 3.6 kg

DRUGS (3)
  1. PEG-INTRON [Suspect]
     Indication: HEPATITIS C
     Dosage: 0.5 ML INTRAMUSCULAR
     Route: 030
     Dates: start: 20021101, end: 20030928
  2. REBETOL [Suspect]
     Indication: HEPATITIS C
     Dosage: 1200 MG QD ORAL
     Route: 048
     Dates: start: 20021101, end: 20030928
  3. PRENATAL VITAMINS [Concomitant]

REACTIONS (4)
  - HEPATITIS C ANTIBODY POSITIVE [None]
  - HIP DYSPLASIA [None]
  - MATERNAL CONDITION AFFECTING FOETUS [None]
  - PERTUSSIS [None]
